FAERS Safety Report 22337756 (Version 1)
Quarter: 2023Q2

REPORT INFORMATION
  Report Type: Spontaneous
  Country: US (occurrence: US)
  Receive Date: 20230518
  Receipt Date: 20230518
  Transmission Date: 20230721
  Serious: No
  Sender: FDA-Public Use
  Company Number: US-COLLEGIUM PHARMACEUTICAL, INC.-2022CGM00332

PATIENT
  Sex: Female

DRUGS (3)
  1. XTAMPZA ER [Suspect]
     Active Substance: OXYCODONE
     Dosage: 36 MG, 3X/DAY
     Route: 048
     Dates: start: 202204
  2. XTAMPZA ER [Suspect]
     Active Substance: OXYCODONE
     Dosage: 9 MILLIGRAM, TID
     Route: 048
     Dates: start: 202204
  3. XTAMPZA ER [Suspect]
     Active Substance: OXYCODONE
     Dosage: UNK, UNKNOWN
     Route: 065

REACTIONS (3)
  - Gastric disorder [Not Recovered/Not Resolved]
  - Vomiting [Not Recovered/Not Resolved]
  - Unevaluable event [Not Recovered/Not Resolved]

NARRATIVE: CASE EVENT DATE: 20220401
